FAERS Safety Report 8310463-7 (Version None)
Quarter: 2012Q2

REPORT INFORMATION
  Report Type: 
  Country: None (occurrence: None)
  Receive Date: 20120425
  Receipt Date: 20120410
  Transmission Date: 20120825
  Serious: Yes (Hospitalization, Other)
  Sender: FDA-Public Use
  Company Number: US-MYLANLABS-2010AC000404

PATIENT
  Sex: Male
  Weight: 85.28 kg

DRUGS (26)
  1. COUMADIN [Concomitant]
  2. LASIX [Concomitant]
  3. LOVENOX [Concomitant]
     Dosage: INJECTIONS
  4. DIGOXIN [Suspect]
     Route: 048
     Dates: start: 20021015, end: 20080213
  5. FLOMAX [Concomitant]
  6. ZOCOR [Concomitant]
  7. BETAPACE [Concomitant]
     Dosage: ONE HALF
  8. DARVOCET-N 50 [Concomitant]
  9. AMIODARONE HCL [Concomitant]
  10. AMBIEN [Concomitant]
  11. LIPITOR [Concomitant]
  12. LISINOPRIL [Concomitant]
  13. NICODERM CQ [Concomitant]
     Route: 062
  14. SIMVASTATIN [Concomitant]
  15. ATENOLOL [Concomitant]
  16. COREG [Concomitant]
  17. CRESTOR [Concomitant]
  18. FLEXERIL [Concomitant]
     Dosage: Q8 HRS/PRN
     Route: 048
  19. MICRO-K [Concomitant]
  20. POTASSIUM CHLORIDE [Concomitant]
  21. ASPIRIN [Concomitant]
  22. MIRAPEX [Concomitant]
     Route: 048
  23. PROTONIX [Concomitant]
  24. SPIRONOLACTONE [Concomitant]
  25. VICODIN [Concomitant]
     Dosage: 5/500MG - ONE EVERY 4 HOURS/PRN
  26. VISTARIL [Concomitant]

REACTIONS (39)
  - IMPLANTABLE DEFIBRILLATOR REPLACEMENT [None]
  - BUNDLE BRANCH BLOCK LEFT [None]
  - LEFT VENTRICULAR HYPERTROPHY [None]
  - ABDOMINAL DISTENSION [None]
  - CARDIAC VENTRICULOGRAM LEFT ABNORMAL [None]
  - ECHOCARDIOGRAM ABNORMAL [None]
  - TOBACCO USER [None]
  - VENTRICULAR EXTRASYSTOLES [None]
  - CARDIAC DISORDER [None]
  - PAIN [None]
  - ATRIAL FIBRILLATION [None]
  - ERECTILE DYSFUNCTION [None]
  - EMOTIONAL DISTRESS [None]
  - ECONOMIC PROBLEM [None]
  - HYPOXIA [None]
  - PALPITATIONS [None]
  - HEMIPARESIS [None]
  - BREATH SOUNDS ABNORMAL [None]
  - CARDIOMEGALY [None]
  - HEADACHE [None]
  - ORTHOPNOEA [None]
  - SUPRAVENTRICULAR EXTRASYSTOLES [None]
  - VENTRICULAR TACHYCARDIA [None]
  - FLUID OVERLOAD [None]
  - DYSPNOEA [None]
  - CEREBROVASCULAR ACCIDENT [None]
  - CONGESTIVE CARDIOMYOPATHY [None]
  - MITRAL VALVE INCOMPETENCE [None]
  - PULMONARY HYPERTENSION [None]
  - TACHYCARDIA [None]
  - INJURY [None]
  - ILL-DEFINED DISORDER [None]
  - HEART RATE IRREGULAR [None]
  - ANXIETY [None]
  - CARDIOACTIVE DRUG LEVEL DECREASED [None]
  - HYPOAESTHESIA [None]
  - NERVOUSNESS [None]
  - SPEECH DISORDER [None]
  - CHEST DISCOMFORT [None]
